FAERS Safety Report 9364047 (Version 2)
Quarter: 2014Q1

REPORT INFORMATION
  Report Type: Spontaneous
  Country: FR (occurrence: None)
  Receive Date: 20130620
  Receipt Date: 20140128
  Transmission Date: 20141002
  Serious: Yes (Other)
  Sender: FDA-Public Use
  Company Number: FR-20130256

PATIENT
  Age: 49 Year
  Sex: Male

DRUGS (1)
  1. DOTAREM [Suspect]
     Indication: NUCLEAR MAGNETIC RESONANCE IMAGING LIVER
     Dosage: 20 ML (20 ML, 1 IN 1 D), INTRAVENOUS (NOT OTHERWISE SPECIFIED)
     Route: 042
     Dates: start: 20130524, end: 20130524

REACTIONS (6)
  - Angioedema [None]
  - Papilloedema [None]
  - Pruritus [None]
  - Lacrimation increased [None]
  - Blister [None]
  - Oropharyngeal discomfort [None]
